FAERS Safety Report 8219378-6 (Version None)
Quarter: 2012Q1

REPORT INFORMATION
  Report Type: 
  Country: None (occurrence: None)
  Receive Date: 20120319
  Receipt Date: 20120312
  Transmission Date: 20120608
  Serious: Yes (Hospitalization, Other)
  Sender: FDA-Public Use
  Company Number: PHHY2012BR022474

PATIENT
  Sex: Male

DRUGS (2)
  1. DIOVAN HCT [Suspect]
     Indication: HYPERTENSION
     Dosage: 160MG VALS/12.5MG HYDROCHLOROTHIAZIDE, UNK
  2. ATENOLOL [Suspect]
     Dosage: UNK UKN, UNK

REACTIONS (2)
  - RENAL DISORDER [None]
  - RENAL CANCER [None]
